FAERS Safety Report 9527591 (Version 1)
Quarter: 2013Q3

REPORT INFORMATION
  Report Type: Spontaneous
  Country: US (occurrence: None)
  Receive Date: 20130913
  Receipt Date: 20130913
  Transmission Date: 20140515
  Serious: Yes (Disabling, Other)
  Sender: FDA-Public Use
  Company Number: None

PATIENT
  Age: 50 Year
  Sex: Female
  Weight: 54.43 kg

DRUGS (1)
  1. AMITRIPTYLINE [Suspect]
     Indication: ARTHRALGIA
     Dosage: AT BEDTIME
     Route: 048
     Dates: start: 20130719, end: 20130822

REACTIONS (3)
  - Somnambulism [None]
  - Somnambulism [None]
  - Road traffic accident [None]
